FAERS Safety Report 17127262 (Version 2)
Quarter: 2019Q4

REPORT INFORMATION
  Report Type: Spontaneous
  Country: US (occurrence: US)
  Receive Date: 20191209
  Receipt Date: 20191212
  Transmission Date: 20200122
  Serious: Yes (Hospitalization)
  Sender: FDA-Public Use
  Company Number: US-HORIZON-PRO-0261-2019

PATIENT
  Age: 19 Year
  Sex: Female

DRUGS (1)
  1. PROCYSBI [Suspect]
     Active Substance: CYSTEAMINE BITARTRATE
     Indication: CYSTINOSIS
     Dosage: 150MG (2 X 75MG CAPSULES) BY MOUTH TWICE DAILY
     Route: 048

REACTIONS (2)
  - Nausea [Unknown]
  - Haemodialysis [Unknown]
